FAERS Safety Report 24409626 (Version 1)
Quarter: 2024Q4

REPORT INFORMATION
  Report Type: Report from Study
  Country: US (occurrence: US)
  Receive Date: 20241008
  Receipt Date: 20241008
  Transmission Date: 20250115
  Serious: Yes (Other)
  Sender: ABBVIE
  Company Number: US-ABBVIE-5953477

PATIENT
  Age: 56 Year
  Sex: Female

DRUGS (8)
  1. HUMIRA [Suspect]
     Active Substance: ADALIMUMAB
     Indication: Psoriatic arthropathy
     Route: 058
     Dates: start: 20170417
  2. HUMIRA [Suspect]
     Active Substance: ADALIMUMAB
     Indication: Colitis
  3. METOPROLOL [Concomitant]
     Active Substance: METOPROLOL
     Indication: Heart rate
     Dates: start: 20230201
  4. HYOSCYAMINE [Concomitant]
     Active Substance: HYOSCYAMINE
     Indication: Gastrointestinal pain
     Dosage: TIME INTERVAL: AS NECESSARY
     Dates: start: 20230223
  5. VENLAFAXINE [Concomitant]
     Active Substance: VENLAFAXINE HYDROCHLORIDE
     Indication: Temperature regulation disorder
     Dates: start: 20151224
  6. AMLODIPINE [Concomitant]
     Active Substance: AMLODIPINE BESYLATE
     Indication: Blood pressure measurement
     Dates: start: 20150605
  7. OMEPRAZOLE [Concomitant]
     Active Substance: OMEPRAZOLE
     Indication: Colitis
     Dates: start: 20150605
  8. MESALAMINE [Concomitant]
     Active Substance: MESALAMINE
     Indication: Colitis
     Dates: start: 20231118

REACTIONS (5)
  - Joint injury [Unknown]
  - Herpes zoster [Unknown]
  - Blister [Unknown]
  - Gait inability [Recovered/Resolved]
  - Microangiopathy [Unknown]

NARRATIVE: CASE EVENT DATE: 20210617
